FAERS Safety Report 4528551-X (Version None)
Quarter: 2004Q4

REPORT INFORMATION
  Report Type: 
  Country: None (occurrence: None)
  Receive Date: 20041216
  Receipt Date: 20041206
  Transmission Date: 20050328
  Serious: Yes (Hospitalization)
  Sender: FDA-Public Use
  Company Number: GB-ABBOTT-04P-167-0282558-00

PATIENT
  Sex: Male
  Weight: 78 kg

DRUGS (6)
  1. HUMIRA [Suspect]
     Indication: RHEUMATOID ARTHRITIS
     Route: 058
     Dates: start: 20030409
  2. APOREX [Concomitant]
     Indication: DRUG USE FOR UNKNOWN INDICATION
  3. TRAXAM GEL [Concomitant]
     Indication: DRUG USE FOR UNKNOWN INDICATION
  4. CLOBETASONE BUTYRATE [Concomitant]
     Indication: DRUG USE FOR UNKNOWN INDICATION
  5. CINNARIZINE [Concomitant]
     Indication: DRUG USE FOR UNKNOWN INDICATION
  6. DOXYCYCLINE [Concomitant]
     Indication: DRUG USE FOR UNKNOWN INDICATION

REACTIONS (1)
  - FEMORAL NECK FRACTURE [None]
